FAERS Safety Report 5376919-4 (Version None)
Quarter: 2007Q3

REPORT INFORMATION
  Report Type: 
  Country: None (occurrence: None)
  Receive Date: 20070703
  Receipt Date: 20070628
  Transmission Date: 20080115
  Serious: Yes (Death, Life-Threatening)
  Sender: FDA-Public Use
  Company Number: FR-ELI_LILLY_AND_COMPANY-FR200706003481

PATIENT
  Age: 57 Year
  Sex: Male

DRUGS (2)
  1. XIGRIS [Suspect]
     Indication: SEPTIC SHOCK
     Dosage: UNK, OTHER
     Route: 042
     Dates: start: 20070614
  2. NOREPINEPHRINE [Concomitant]
     Indication: SEPTIC SHOCK

REACTIONS (5)
  - CARDIAC ARREST [None]
  - DISSEMINATED INTRAVASCULAR COAGULATION [None]
  - HYPOTENSION [None]
  - METABOLIC ACIDOSIS [None]
  - SEPTIC SHOCK [None]
